FAERS Safety Report 14976966 (Version 1)
Quarter: 2018Q2

REPORT INFORMATION
  Report Type: Spontaneous
  Country: US (occurrence: US)
  Receive Date: 20180605
  Receipt Date: 20180605
  Transmission Date: 20180711
  Serious: No
  Sender: FDA-Public Use
  Company Number: US-CELGENEUS-USA-20180511218

PATIENT
  Age: 18 Month
  Sex: Male

DRUGS (1)
  1. APREMILAST [Suspect]
     Active Substance: APREMILAST
     Indication: DRUG ADMINISTERED TO PATIENT OF INAPPROPRIATE AGE
     Route: 048

REACTIONS (1)
  - Accidental exposure to product by child [Unknown]
